FAERS Safety Report 6841918-X (Version None)
Quarter: 2010Q3

REPORT INFORMATION
  Report Type: 
  Country: None (occurrence: None)
  Receive Date: 20100714
  Receipt Date: 20071005
  Transmission Date: 20110219
  Serious: No
  Sender: FDA-Public Use
  Company Number: US-PFIZER INC-2007059983

PATIENT
  Sex: Female
  Weight: 56.7 kg

DRUGS (5)
  1. CHANTIX [Suspect]
     Indication: SMOKING CESSATION THERAPY
     Dates: start: 20070709
  2. VICODIN [Concomitant]
  3. RANITIDINE [Concomitant]
  4. XANAX [Concomitant]
  5. HYDROXYZINE [Concomitant]

REACTIONS (11)
  - BACK PAIN [None]
  - DYSPNOEA [None]
  - EAR PRURITUS [None]
  - HYPERSENSITIVITY [None]
  - INSOMNIA [None]
  - LACRIMATION INCREASED [None]
  - MUSCLE SPASMS [None]
  - MUSCULOSKELETAL PAIN [None]
  - NAUSEA [None]
  - RHINORRHOEA [None]
  - SNEEZING [None]
